FAERS Safety Report 5388441-X (Version None)
Quarter: 2007Q3

REPORT INFORMATION
  Report Type: 
  Country: None (occurrence: None)
  Receive Date: 20070716
  Receipt Date: 20070704
  Transmission Date: 20080115
  Serious: Yes (Hospitalization, Other)
  Sender: FDA-Public Use
  Company Number: JP-ROCHE-506084

PATIENT
  Age: 16 Year
  Sex: Female

DRUGS (6)
  1. CELLCEPT [Suspect]
     Dosage: DISCONTINUED.
     Route: 065
  2. STEROID NOS [Suspect]
     Indication: DRUG USE FOR UNKNOWN INDICATION
     Dosage: STEROID PULSE THERAPY.
     Route: 050
  3. STEROID NOS [Suspect]
     Dosage: ORAL STEROIDS.
     Route: 050
  4. STEROID NOS [Suspect]
     Dosage: STEROID PULSE THERAPY.
     Route: 050
  5. STEROID NOS [Suspect]
     Route: 050
  6. 1 CONCOMITANT DRUG [Concomitant]
     Dosage: DRUG NAME REPORTED AS FK. TARGET TROUGH LEVEL OF 10-12.

REACTIONS (7)
  - AUTOIMMUNE HEPATITIS [None]
  - COMPRESSION FRACTURE [None]
  - DIABETES MELLITUS [None]
  - GENERALISED OEDEMA [None]
  - HEPATIC VEIN STENOSIS [None]
  - LIVER DISORDER [None]
  - POOR PERIPHERAL CIRCULATION [None]
